FAERS Safety Report 8573366-9 (Version None)
Quarter: 2012Q3

REPORT INFORMATION
  Report Type: 
  Country: None (occurrence: None)
  Receive Date: 20120806
  Receipt Date: 20120802
  Transmission Date: 20120928
  Serious: No
  Sender: FDA-Public Use
  Company Number: US-TEVA-351744USA

PATIENT
  Sex: Male

DRUGS (1)
  1. AZILECT [Suspect]

REACTIONS (1)
  - ATRIAL FIBRILLATION [None]
